FAERS Safety Report 18106672 (Version 1)
Quarter: 2020Q3

REPORT INFORMATION
  Report Type: Spontaneous
  Country: CH (occurrence: CH)
  Receive Date: 20200803
  Receipt Date: 20200803
  Transmission Date: 20201103
  Serious: Yes (Other)
  Sender: FDA-Public Use
  Company Number: CH-JNJFOC-20200743234

PATIENT
  Sex: Male

DRUGS (3)
  1. HALCION [Suspect]
     Active Substance: TRIAZOLAM
     Indication: INSOMNIA
     Route: 065
  2. TRAMAL [Suspect]
     Active Substance: TRAMADOL
     Indication: PAIN
     Route: 065
  3. SPORANOX [Suspect]
     Active Substance: ITRACONAZOLE
     Indication: ONYCHOMYCOSIS
     Route: 065
     Dates: start: 20200706

REACTIONS (2)
  - Drug interaction [Unknown]
  - Somnolence [Unknown]

NARRATIVE: CASE EVENT DATE: 20200706
